FAERS Safety Report 8481450-3 (Version None)
Quarter: 2012Q3

REPORT INFORMATION
  Report Type: 
  Country: None (occurrence: None)
  Receive Date: 20120702
  Receipt Date: 20120626
  Transmission Date: 20120928
  Serious: Yes (Death)
  Sender: FDA-Public Use
  Company Number: US-ASTELLAS-2012US000797

PATIENT
  Sex: Female

DRUGS (1)
  1. ERLOTINIB HYDROCHLORIDE [Suspect]
     Indication: LUNG NEOPLASM MALIGNANT
     Dosage: 200 MG, UID/QD
     Route: 048
     Dates: start: 20110810

REACTIONS (3)
  - NAUSEA [None]
  - DEATH [None]
  - INCORRECT DOSE ADMINISTERED [None]
